FAERS Safety Report 5295025-0 (Version None)
Quarter: 2007Q2

REPORT INFORMATION
  Report Type: 
  Country: None (occurrence: None)
  Receive Date: 20070412
  Receipt Date: 20070402
  Transmission Date: 20071010
  Serious: Yes (Hospitalization, Other)
  Sender: FDA-Public Use
  Company Number: PHBS2005JP17010

PATIENT
  Age: 78 Year
  Sex: Female

DRUGS (1)
  1. GLEEVEC [Suspect]
     Indication: GASTROINTESTINAL STROMAL TUMOUR
     Dosage: 400 MG/D
     Route: 048
     Dates: start: 20050201

REACTIONS (7)
  - ANOREXIA [None]
  - DIARRHOEA [None]
  - FACE OEDEMA [None]
  - HEPATECTOMY [None]
  - OEDEMA [None]
  - POST PROCEDURAL BILE LEAK [None]
  - STOMATITIS [None]
